FAERS Safety Report 4770826-3 (Version None)
Quarter: 2005Q3

REPORT INFORMATION
  Report Type: 
  Country: None (occurrence: None)
  Receive Date: 20050915
  Receipt Date: 20050906
  Transmission Date: 20060218
  Serious: Yes (Other)
  Sender: FDA-Public Use
  Company Number: US-GLAXOSMITHKLINE-A0573101A

PATIENT
  Age: 19 Year
  Sex: Male

DRUGS (3)
  1. PAXIL [Suspect]
     Indication: DEPRESSION
     Dosage: 60MG PER DAY
     Route: 048
     Dates: start: 20050715, end: 20050101
  2. LORAZEPAM [Concomitant]
  3. ADDERALL 10 [Concomitant]

REACTIONS (12)
  - ABNORMAL DREAMS [None]
  - AGGRESSION [None]
  - ANXIETY [None]
  - CHEST PAIN [None]
  - CRYING [None]
  - DRUG WITHDRAWAL SYNDROME [None]
  - HOT FLUSH [None]
  - MUSCLE SPASMS [None]
  - MYDRIASIS [None]
  - PHARYNGITIS [None]
  - SHOCK [None]
  - THROAT LESION [None]
